FAERS Safety Report 9162526 (Version 1)
Quarter: 2013Q1

REPORT INFORMATION
  Report Type: Spontaneous
  Country: GB (occurrence: None)
  Receive Date: 20130215
  Receipt Date: 20130215
  Transmission Date: 20140127
  Serious: Yes (Hospitalization)
  Sender: FDA-Public Use
  Company Number: 2013-00315

PATIENT
  Age: 31 Year
  Sex: Female
  Weight: 100 kg

DRUGS (6)
  1. CEFALEXIN [Suspect]
     Indication: AXILLARY MASS
     Route: 048
     Dates: start: 20130116, end: 20130119
  2. AMOXICILLIN + AMOXICILLIN TRIHYDRATE+AMOXYCILLIN + AMOXYCILLIN TRIHYDRATE + CLAVULANATE POTASSIUM + CLAVULANIC ACID + POTASSIUM CLAVULANATE (AUGMENTIN) [Concomitant]
  3. DICLOFENAC [Concomitant]
  4. ENOXAPARIN [Concomitant]
  5. LEVOTHYROXINE [Concomitant]
  6. PARACETAMOL [Concomitant]

REACTIONS (3)
  - Hypersensitivity [None]
  - Wound decomposition [None]
  - Heart rate increased [None]
